FAERS Safety Report 20635964 (Version 5)
Quarter: 2022Q3

REPORT INFORMATION
  Report Type: Report from Study
  Country: GB (occurrence: GB)
  Receive Date: 20220325
  Receipt Date: 20220824
  Transmission Date: 20221027
  Serious: Yes (Hospitalization)
  Sender: FDA-Public Use
  Company Number: GB-NOVARTISPH-NVSC2021GB256523

PATIENT
  Sex: Female

DRUGS (1)
  1. KISQALI [Suspect]
     Active Substance: RIBOCICLIB
     Indication: Breast cancer
     Dosage: 600 MG, QD
     Route: 048
     Dates: start: 20211026

REACTIONS (20)
  - Influenza [Unknown]
  - Pyrexia [Unknown]
  - Diarrhoea [Unknown]
  - Hot flush [Unknown]
  - Hyperhidrosis [Unknown]
  - Hypertension [Unknown]
  - Saliva altered [Unknown]
  - Hypoaesthesia oral [Unknown]
  - COVID-19 [Unknown]
  - Pain in jaw [Unknown]
  - Weight increased [Unknown]
  - Alopecia [Unknown]
  - Erythema [Unknown]
  - Vomiting [Unknown]
  - Fatigue [Unknown]
  - Blood calcium decreased [Unknown]
  - White blood cell count decreased [Unknown]
  - Nausea [Unknown]
  - Constipation [Recovering/Resolving]
  - Musculoskeletal discomfort [Unknown]

NARRATIVE: CASE EVENT DATE: 20220317
